FAERS Safety Report 24054947 (Version 1)
Quarter: 2024Q3

REPORT INFORMATION
  Report Type: Spontaneous
  Country: CA (occurrence: CA)
  Receive Date: 20240705
  Receipt Date: 20240705
  Transmission Date: 20241017
  Serious: Yes (Life-Threatening, Hospitalization)
  Sender: TEVA
  Company Number: CA-TEVA-VS-3214713

PATIENT
  Age: 27 Year
  Sex: Male

DRUGS (11)
  1. METHOTREXATE [Suspect]
     Active Substance: METHOTREXATE
     Indication: Immune-mediated myositis
     Route: 065
  2. TACROLIMUS [Interacting]
     Active Substance: TACROLIMUS
     Indication: Immune-mediated myositis
     Route: 065
  3. RITUXIMAB [Interacting]
     Active Substance: RITUXIMAB
     Indication: Immune-mediated myositis
     Route: 065
  4. RITUXIMAB [Interacting]
     Active Substance: RITUXIMAB
     Indication: Immune-mediated myositis
     Route: 065
  5. DARATUMUMAB [Interacting]
     Active Substance: DARATUMUMAB
     Indication: Immune-mediated myositis
     Dosage: DOSAGE FORM: SOLUTION INTRAVENOUS
     Route: 065
  6. GAMMAGARD [Interacting]
     Active Substance: HUMAN IMMUNOGLOBULIN G
     Indication: Immune-mediated myositis
     Dosage: GAMMAGARD LIQUID ALSO KNOW AS IMMUNE GLOBULIN (HUMAN)
     Route: 042
  7. GAMMAGARD [Interacting]
     Active Substance: HUMAN IMMUNOGLOBULIN G
     Indication: Immune-mediated myositis
     Route: 042
  8. GAMMAGARD [Interacting]
     Active Substance: HUMAN IMMUNOGLOBULIN G
     Indication: Immune-mediated myositis
     Dosage: DOSAGE FORM: SOLUTION INTRAVENOUS
     Route: 042
  9. DEXAMETHASONE [Concomitant]
     Active Substance: DEXAMETHASONE
     Indication: Immune-mediated myositis
     Route: 065
  10. PREDNISONE [Concomitant]
     Active Substance: PREDNISONE
     Indication: Immune-mediated myositis
     Route: 065
  11. SULFAMETHOXAZOLE\TRIMETHOPRIM [Concomitant]
     Active Substance: SULFAMETHOXAZOLE\TRIMETHOPRIM
     Indication: Immune-mediated myositis
     Route: 065

REACTIONS (7)
  - COVID-19 [Recovering/Resolving]
  - Blood immunoglobulin A decreased [Recovering/Resolving]
  - Blood immunoglobulin M decreased [Recovering/Resolving]
  - Immune-mediated myositis [Recovering/Resolving]
  - Potentiating drug interaction [Recovering/Resolving]
  - Vascular device infection [Recovering/Resolving]
  - Off label use [Recovering/Resolving]
